FAERS Safety Report 18367996 (Version 1)
Quarter: 2020Q4

REPORT INFORMATION
  Report Type: Spontaneous
  Country: US (occurrence: US)
  Receive Date: 20201009
  Receipt Date: 20201009
  Transmission Date: 20210114
  Serious: Yes (Hospitalization)
  Sender: FDA-Public Use
  Company Number: US-ELI_LILLY_AND_COMPANY-US202010001130

PATIENT
  Sex: Female

DRUGS (8)
  1. INSULIN HUMAN [Suspect]
     Active Substance: INSULIN HUMAN
     Dosage: 125 U, DAILY (AT NIGHT)
     Route: 058
  2. INSULIN HUMAN [Suspect]
     Active Substance: INSULIN HUMAN
     Dosage: 125 U, DAILY (AT NIGHT)
     Route: 058
  3. INSULIN HUMAN [Suspect]
     Active Substance: INSULIN HUMAN
     Dosage: 115 U, EACH MORNING
     Route: 058
  4. INSULIN HUMAN [Suspect]
     Active Substance: INSULIN HUMAN
     Dosage: 125 U, DAILY (AT NIGHT)
     Route: 058
  5. INSULIN HUMAN [Suspect]
     Active Substance: INSULIN HUMAN
     Indication: DIABETES MELLITUS
     Dosage: 115 U, EACH MORNING
     Route: 058
     Dates: start: 202001
  6. INSULIN HUMAN [Suspect]
     Active Substance: INSULIN HUMAN
     Indication: DIABETES MELLITUS
     Dosage: 115 U, EACH MORNING
     Route: 058
     Dates: start: 202001
  7. INSULIN HUMAN [Suspect]
     Active Substance: INSULIN HUMAN
     Dosage: 115 U, EACH MORNING
     Route: 058
  8. INSULIN HUMAN [Suspect]
     Active Substance: INSULIN HUMAN
     Dosage: 125 U, DAILY (AT NIGHT)
     Route: 058

REACTIONS (6)
  - Dehydration [Unknown]
  - Gait disturbance [Unknown]
  - Blood glucose increased [Unknown]
  - Lethargy [Unknown]
  - Visual impairment [Unknown]
  - Hypertension [Unknown]
